FAERS Safety Report 5513589-6 (Version None)
Quarter: 2007Q4

REPORT INFORMATION
  Report Type: 
  Country: None (occurrence: None)
  Receive Date: 20071108
  Receipt Date: 20071031
  Transmission Date: 20080405
  Serious: Yes (Other)
  Sender: FDA-Public Use
  Company Number: 2007-04903

PATIENT
  Age: 71 Year
  Sex: Female

DRUGS (10)
  1. ANDRODERM [Suspect]
     Indication: HORMONE REPLACEMENT THERAPY
     Dosage: 0.188 MG, QAM, + 0.375MG QPM, 2.25 MG DAILY
     Dates: start: 19980601, end: 20041201
  2. ANDRODERM [Suspect]
     Indication: HORMONE REPLACEMENT THERAPY
     Dosage: 0.188 MG, QAM, + 0.375MG QPM, 2.25 MG DAILY
     Dates: start: 20020701, end: 20041201
  3. PROGESTERONE IN OIL INJ [Suspect]
     Indication: HORMONE REPLACEMENT THERAPY
     Dosage: 37.5 MG QAM + 75MG QPM TROCHE
     Dates: start: 19980601, end: 20041201
  4. PROGESTERONE IN OIL INJ [Suspect]
     Indication: HORMONE REPLACEMENT THERAPY
     Dosage: 37.5 MG QAM + 75MG QPM TROCHE
     Dates: start: 20020701, end: 20041201
  5. ESTRADIOL [Suspect]
     Indication: HORMONE REPLACEMENT THERAPY
     Dosage: 0.875 MG, DAILY, 0.375 MG, QAM + 0.75 MG QPM
     Dates: start: 19980601, end: 20020701
  6. ESTRADIOL [Suspect]
     Indication: HORMONE REPLACEMENT THERAPY
     Dosage: 0.875 MG, DAILY, 0.375 MG, QAM + 0.75 MG QPM
     Dates: start: 20020701, end: 20041201
  7. DHEA(PRASTERONE) 5MG [Suspect]
     Indication: HORMONE REPLACEMENT THERAPY
     Dosage: 0.625 MG, QAM + 1.25MG QPM, 2.5 MG, DAILY
     Dates: start: 19980601, end: 20020701
  8. DHEA(PRASTERONE) 5MG [Suspect]
     Indication: HORMONE REPLACEMENT THERAPY
     Dosage: 0.625 MG, QAM + 1.25MG QPM, 2.5 MG, DAILY
     Dates: start: 20020701, end: 20041201
  9. ESTRONE [Suspect]
     Indication: HORMONE REPLACEMENT THERAPY
     Dosage: 0.375 MG, QAM + 0.75MG QPM
     Dates: start: 20020701, end: 20041201
  10. ESTRIOL(ESTRIOL) [Suspect]
     Indication: HORMONE REPLACEMENT THERAPY
     Dosage: 0.375 MG, QAM + 0.75MG QPM
     Dates: start: 20020701, end: 20041201

REACTIONS (1)
  - ENDOMETRIAL CANCER STAGE I [None]
